FAERS Safety Report 6240399-7 (Version None)
Quarter: 2009Q2

REPORT INFORMATION
  Report Type: 
  Country: None (occurrence: None)
  Receive Date: 20090619
  Receipt Date: 20090604
  Transmission Date: 20091009
  Serious: Yes (Death)
  Sender: FDA-Public Use
  Company Number: 2008AL005475

PATIENT
  Age: 78 Year
  Sex: Female

DRUGS (10)
  1. DIGOXIN [Suspect]
     Dosage: PO
     Route: 048
  2. LOVENOX [Concomitant]
  3. PANAFIL [Concomitant]
  4. ADVAIR HFA [Concomitant]
  5. DILTIAZEM [Concomitant]
  6. ASPIRIN [Concomitant]
  7. VITAMIN D [Concomitant]
  8. METFORMIN [Concomitant]
  9. PREDNISONE TAB [Concomitant]
  10. LOPRESSOR [Concomitant]

REACTIONS (20)
  - ACTIVITIES OF DAILY LIVING IMPAIRED [None]
  - ANHEDONIA [None]
  - ANXIETY [None]
  - ATRIAL FIBRILLATION [None]
  - CARDIAC DISORDER [None]
  - DISORIENTATION [None]
  - DIZZINESS [None]
  - ECONOMIC PROBLEM [None]
  - EMOTIONAL DISORDER [None]
  - FALL [None]
  - HIP FRACTURE [None]
  - HYPERTENSION [None]
  - ILL-DEFINED DISORDER [None]
  - LOSS OF EMPLOYMENT [None]
  - METABOLIC ENCEPHALOPATHY [None]
  - NAUSEA [None]
  - PAIN [None]
  - SOCIAL PROBLEM [None]
  - TOXIC ENCEPHALOPATHY [None]
  - VOMITING [None]
